FAERS Safety Report 12095353 (Version 2)
Quarter: 2022Q1

REPORT INFORMATION
  Report Type: Spontaneous
  Country: FR (occurrence: None)
  Receive Date: 20160219
  Receipt Date: 20220120
  Transmission Date: 20220423
  Serious: Yes (Life-Threatening)
  Sender: FDA-Public Use
  Company Number: 2016SE16621

PATIENT
  Age: 3970 Day
  Sex: Male

DRUGS (18)
  1. ESOMEPRAZOLE [Suspect]
     Active Substance: ESOMEPRAZOLE
     Route: 048
     Dates: start: 20160130
  2. ZOVIRAX [Suspect]
     Active Substance: ACYCLOVIR
     Route: 065
     Dates: start: 20160122
  3. AMITRIPTYLINE HYDROCHLORIDE [Suspect]
     Active Substance: AMITRIPTYLINE HYDROCHLORIDE
     Route: 065
     Dates: start: 20160131
  4. FUNGIZONE [Suspect]
     Active Substance: AMPHOTERICIN B
     Route: 065
     Dates: start: 20160122
  5. AMBISOME [Suspect]
     Active Substance: AMPHOTERICIN B
     Route: 065
     Dates: start: 20160201
  6. CEPHALEXIN [Suspect]
     Active Substance: CEPHALEXIN
     Route: 048
     Dates: start: 20160122
  7. CEFTAZIDIME [Suspect]
     Active Substance: CEFTAZIDIME
     Route: 065
     Dates: start: 20160124
  8. CYCLOSPORINE [Suspect]
     Active Substance: CYCLOSPORINE
     Route: 065
     Dates: start: 20160130
  9. CIPROFLOXACIN [Suspect]
     Active Substance: CIPROFLOXACIN
     Route: 065
     Dates: start: 20160203
  10. COLISTIN SULFATE [Suspect]
     Active Substance: COLISTIN SULFATE
     Route: 065
     Dates: start: 20160122
  11. LOVENOX [Suspect]
     Active Substance: ENOXAPARIN SODIUM
     Route: 058
     Dates: start: 20160122
  12. FLUCONAZOLE [Suspect]
     Active Substance: FLUCONAZOLE
     Route: 065
     Dates: start: 20160122
  13. NETILMICIN [Suspect]
     Active Substance: NETILMICIN
     Route: 065
     Dates: start: 20160122
  14. ONDANSETRON [Suspect]
     Active Substance: ONDANSETRON
     Route: 065
     Dates: start: 20160130
  15. CLAIRYG [Suspect]
     Active Substance: HUMAN IMMUNOGLOBULIN G
     Dosage: 10 MCI ONCE
     Route: 065
     Dates: start: 20160122, end: 20160122
  16. TARGOCID [Suspect]
     Active Substance: TEICOPLANIN
     Route: 042
     Dates: start: 20160129
  17. URSODIOL [Suspect]
     Active Substance: URSODIOL
     Route: 048
     Dates: start: 20160122
  18. PERINDOPRIL [Concomitant]
     Active Substance: PERINDOPRIL

REACTIONS (3)
  - Graft versus host disease [Unknown]
  - Stevens-Johnson syndrome [Not Recovered/Not Resolved]
  - Pyrexia [Unknown]

NARRATIVE: CASE EVENT DATE: 20160201
